FAERS Safety Report 4519937-8 (Version None)
Quarter: 2004Q4

REPORT INFORMATION
  Report Type: 
  Country: None (occurrence: None)
  Receive Date: 20041207
  Receipt Date: 20041130
  Transmission Date: 20050328
  Serious: Yes (Life-Threatening)
  Sender: FDA-Public Use
  Company Number: AU-ROCHE-387839

PATIENT
  Age: 68 Year
  Sex: Male
  Weight: 80 kg

DRUGS (12)
  1. ROCEPHIN [Suspect]
     Indication: PNEUMONIA
     Route: 042
     Dates: start: 20040805, end: 20040805
  2. SERETIDE [Concomitant]
     Route: 055
  3. LIPITOR [Concomitant]
     Route: 048
  4. IKOREL [Concomitant]
     Route: 048
  5. ACIMAX [Concomitant]
     Route: 048
  6. UREMIDE [Concomitant]
     Route: 048
  7. SLOW-K [Concomitant]
     Route: 048
  8. TRITACE [Concomitant]
     Route: 048
  9. PROGOUT [Concomitant]
     Route: 048
  10. FOLIC ACID [Concomitant]
  11. KREDEX [Concomitant]
     Route: 048
  12. WARFARIN SODIUM [Concomitant]
     Route: 048

REACTIONS (1)
  - CARDIAC ARREST [None]
